FAERS Safety Report 9531526 (Version 1)
Quarter: 2013Q3

REPORT INFORMATION
  Report Type: Spontaneous
  Country: IN (occurrence: IN)
  Receive Date: 20130918
  Receipt Date: 20130918
  Transmission Date: 20140515
  Serious: Yes (Other)
  Sender: FDA-Public Use
  Company Number: IN-PFIZER INC-2013265619

PATIENT
  Sex: Male

DRUGS (1)
  1. PREMARIN [Suspect]
     Route: 050

REACTIONS (2)
  - Exposure via partner [Unknown]
  - Breast cancer male [Unknown]
